FAERS Safety Report 14691367 (Version 1)
Quarter: 2018Q1

REPORT INFORMATION
  Report Type: Report from Study
  Country: US (occurrence: US)
  Receive Date: 20180328
  Receipt Date: 20180328
  Transmission Date: 20180509
  Serious: Yes (Death, Hospitalization, Other)
  Sender: FDA-Public Use
  Company Number: US-GILEAD-2018-0329369

PATIENT
  Age: 62 Year
  Sex: Female

DRUGS (1)
  1. LEDIPASVIR/SOFOSBUVIR [Suspect]
     Active Substance: LEDIPASVIR\SOFOSBUVIR
     Indication: HEPATITIS C
     Dosage: 1 DF, QD
     Route: 048
     Dates: start: 20171001

REACTIONS (6)
  - Renal failure [Fatal]
  - Loss of consciousness [Unknown]
  - Abdominal distension [Not Recovered/Not Resolved]
  - Constipation [Unknown]
  - Sepsis [Fatal]
  - Infection [Fatal]

NARRATIVE: CASE EVENT DATE: 2018
